FAERS Safety Report 6706828-7 (Version None)
Quarter: 2010Q2

REPORT INFORMATION
  Report Type: 
  Country: None (occurrence: None)
  Receive Date: 20100503
  Receipt Date: 20100426
  Transmission Date: 20101027
  Serious: Yes (Hospitalization)
  Sender: FDA-Public Use
  Company Number: IT-ABBOTT-10P-083-0638778-00

PATIENT
  Age: 8 Year
  Sex: Male

DRUGS (1)
  1. DEPAKENE [Suspect]
     Indication: EPILEPSY
     Dosage: 600 MG DAILY
     Route: 048
     Dates: start: 20100327, end: 20100331

REACTIONS (7)
  - ABDOMINAL PAIN [None]
  - ANTICONVULSANT DRUG LEVEL INCREASED [None]
  - HICCUPS [None]
  - HYPERAMMONAEMIA [None]
  - SOMNOLENCE [None]
  - SPEECH DISORDER [None]
  - VOMITING [None]
